FAERS Safety Report 8816914 (Version 1)
Quarter: 2012Q4

REPORT INFORMATION
  Report Type: Spontaneous
  Country: US (occurrence: None)
  Receive Date: 20121002
  Receipt Date: 20121002
  Transmission Date: 20130627
  Serious: Yes (Other)
  Sender: FDA-Public Use
  Company Number: None

PATIENT
  Sex: Female
  Weight: 48.99 kg

DRUGS (2)
  1. SULFAMETHOXAZOLE AND TRIMETHOPRIM [Suspect]
     Indication: BLADDER INFECTION
     Dosage: 1 by mouth every 12 hours
     Route: 048
     Dates: start: 20120911, end: 20120921
  2. SULFAMETHOXAZOLE AND TRIMETHOPRIM [Suspect]
     Indication: UPPER RESPIRATORY INFECTION
     Dosage: 1 by mouth every 12 hours
     Route: 048
     Dates: start: 20120911, end: 20120921

REACTIONS (6)
  - Anosmia [None]
  - Ageusia [None]
  - Back pain [None]
  - Neck pain [None]
  - Abdominal pain upper [None]
  - Musculoskeletal chest pain [None]
